FAERS Safety Report 18885367 (Version 1)
Quarter: 2021Q1

REPORT INFORMATION
  Report Type: Spontaneous
  Country: US (occurrence: US)
  Receive Date: 20210212
  Receipt Date: 20210212
  Transmission Date: 20210420
  Serious: Yes (Hospitalization)
  Sender: FDA-Public Use
  Company Number: None

PATIENT
  Age: 39 Year
  Sex: Male
  Weight: 79.4 kg

DRUGS (1)
  1. BAMLANIVIMAB 700MG/20ML [Suspect]
     Active Substance: BAMLANIVIMAB
     Indication: SARS-COV-2 TEST POSITIVE
     Dosage: ?          OTHER DOSE:700 MG/250 ML;OTHER ROUTE:IV?
     Route: 042
     Dates: start: 20210204, end: 20210204

REACTIONS (3)
  - Infusion related reaction [None]
  - Presyncope [None]
  - Hypotension [None]

NARRATIVE: CASE EVENT DATE: 20210204
